FAERS Safety Report 7393063-5 (Version None)
Quarter: 2011Q2

REPORT INFORMATION
  Report Type: 
  Country: None (occurrence: None)
  Receive Date: 20110404
  Receipt Date: 20110330
  Transmission Date: 20111010
  Serious: Yes (Other)
  Sender: FDA-Public Use
  Company Number: GB-ABBOTT-11P-167-0705450-00

PATIENT
  Sex: Female

DRUGS (4)
  1. OLSALAZINE [Concomitant]
     Indication: COLITIS
     Route: 048
  2. AZATHIOPRINE [Concomitant]
     Indication: COLITIS
     Route: 048
     Dates: start: 20050101, end: 20110101
  3. PREDNISOLONE [Concomitant]
     Indication: COLITIS
     Dosage: FREQUENCY DECREASED
     Route: 048
     Dates: start: 20101129, end: 20101201
  4. HUMIRA [Suspect]
     Indication: COLITIS
     Route: 058
     Dates: start: 20101207, end: 20110203

REACTIONS (6)
  - LIP SWELLING [None]
  - BONE PAIN [None]
  - INJECTION SITE REACTION [None]
  - SWOLLEN TONGUE [None]
  - PHARYNGEAL OEDEMA [None]
  - EYELID OEDEMA [None]
